FAERS Safety Report 14345769 (Version 1)
Quarter: 2018Q1

REPORT INFORMATION
  Report Type: Spontaneous
  Country: IT (occurrence: IT)
  Receive Date: 20180103
  Receipt Date: 20180103
  Transmission Date: 20180509
  Serious: Yes (Death, Life-Threatening, Hospitalization, Disabling, Other)
  Sender: FDA-Public Use
  Company Number: IT-JNJFOC-20171227508

PATIENT

DRUGS (4)
  1. CANAGLIFLOZIN [Suspect]
     Active Substance: CANAGLIFLOZIN
     Indication: TYPE 1 DIABETES MELLITUS
     Route: 065
  2. CANAGLIFLOZIN [Suspect]
     Active Substance: CANAGLIFLOZIN
     Indication: OBESITY
     Route: 065
  3. CANAGLIFLOZIN [Suspect]
     Active Substance: CANAGLIFLOZIN
     Indication: TYPE 2 DIABETES MELLITUS
     Route: 065
  4. CANAGLIFLOZIN [Suspect]
     Active Substance: CANAGLIFLOZIN
     Indication: LATENT AUTOIMMUNE DIABETES IN ADULTS
     Route: 065

REACTIONS (57)
  - Immune system disorder [Unknown]
  - Mediastinal disorder [Unknown]
  - Inner ear disorder [Unknown]
  - Hypermagnesaemia [Unknown]
  - Urinary tract infection [Unknown]
  - Bladder cancer [Unknown]
  - Fracture [Unknown]
  - Gastrointestinal disorder [Unknown]
  - Nervous system disorder [Unknown]
  - Angiopathy [Unknown]
  - Genital infection [Unknown]
  - Injury [Unknown]
  - Vulvovaginitis [Unknown]
  - Surgery [Unknown]
  - Cardiac disorder [Unknown]
  - Eye disorder [Unknown]
  - Metabolic disorder [Unknown]
  - Bone density decreased [Unknown]
  - Product quality issue [Unknown]
  - Skin disorder [Fatal]
  - Renal disorder [Unknown]
  - Endocrine disorder [Unknown]
  - Musculoskeletal disorder [Unknown]
  - Respiratory disorder [Unknown]
  - Product use issue [Unknown]
  - Balanoposthitis [Unknown]
  - Polyuria [Unknown]
  - Benign neoplasm [Unknown]
  - Congenital anomaly [Unknown]
  - Hepatobiliary disease [Unknown]
  - Reproductive tract disorder [Unknown]
  - Breast disorder [Unknown]
  - Product use in unapproved indication [Unknown]
  - Procedural complication [Unknown]
  - Glycosuria [Unknown]
  - Low density lipoprotein increased [Unknown]
  - Breast cancer [Unknown]
  - Neoplasm malignant [Unknown]
  - Ketoacidosis [Unknown]
  - Ear disorder [Unknown]
  - Infection [Unknown]
  - Connective tissue disorder [Unknown]
  - Prostatitis [Unknown]
  - Adverse event [Unknown]
  - Poisoning [Unknown]
  - Blood disorder [Unknown]
  - Off label use [Unknown]
  - Urinary tract disorder [Unknown]
  - Infestation [Unknown]
  - Malnutrition [Unknown]
  - Hyperphosphataemia [Unknown]
  - Lymphatic disorder [Unknown]
  - Mental disorder [Unknown]
  - Hypovolaemia [Unknown]
  - Social problem [Unknown]
  - Hypoglycaemia [Unknown]
  - Haemoconcentration [Unknown]
